FAERS Safety Report 5793370-3 (Version None)
Quarter: 2008Q2

REPORT INFORMATION
  Report Type: 
  Country: None (occurrence: None)
  Receive Date: 20080627
  Receipt Date: 20080619
  Transmission Date: 20081010
  Serious: Yes (Hospitalization)
  Sender: FDA-Public Use
  Company Number: B0526887A

PATIENT
  Age: 24 Year
  Sex: Female

DRUGS (4)
  1. LAMICTAL [Suspect]
     Indication: EPILEPSY
     Route: 065
     Dates: start: 20070101
  2. FENANTOIN [Concomitant]
     Indication: EPILEPSY
     Route: 065
     Dates: end: 20070101
  3. ACETAMINOPHEN [Concomitant]
     Route: 065
  4. TRAMADOL HCL [Concomitant]
     Route: 065

REACTIONS (7)
  - CONVULSION [None]
  - DRUG INEFFECTIVE [None]
  - EPILEPSY [None]
  - HAEMATOMA [None]
  - HEAD INJURY [None]
  - HEADACHE [None]
  - TONGUE BITING [None]
